FAERS Safety Report 5962337-4 (Version None)
Quarter: 2008Q4

REPORT INFORMATION
  Report Type: 
  Country: None (occurrence: None)
  Receive Date: 20081121
  Receipt Date: 20081111
  Transmission Date: 20090506
  Serious: Yes (Other)
  Sender: FDA-Public Use
  Company Number: PT-ABBOTT-08P-130-0487931-00

PATIENT
  Sex: Male

DRUGS (4)
  1. RITONAVIR SOFT GELATIN CAPSULES [Suspect]
     Indication: HIV INFECTION
     Dates: start: 20071120
  2. ATAZANAVIR SULFATE [Suspect]
     Indication: HIV INFECTION
     Route: 048
     Dates: start: 20071120
  3. ZIDOVUDINE [Suspect]
     Indication: HIV INFECTION
     Dates: start: 20070831
  4. LAMIVUDINE [Suspect]
     Indication: HIV INFECTION
     Dates: start: 20070831

REACTIONS (3)
  - BLOOD GLUCOSE INCREASED [None]
  - CD4 LYMPHOCYTES DECREASED [None]
  - HEPATITIS C [None]
